FAERS Safety Report 4753538-1 (Version None)
Quarter: 2005Q3

REPORT INFORMATION
  Report Type: 
  Country: None (occurrence: None)
  Receive Date: 20050826
  Receipt Date: 20041102
  Transmission Date: 20060218
  Serious: Yes (Death, Hospitalization)
  Sender: FDA-Public Use
  Company Number: 200414136FR

PATIENT
  Age: 76 Year
  Sex: Male
  Weight: 98 kg

DRUGS (14)
  1. RIFADIN [Suspect]
     Route: 048
     Dates: start: 20040914, end: 20040920
  2. TAVANIC [Suspect]
     Indication: ARTHRITIS BACTERIAL
     Route: 042
     Dates: start: 20040901, end: 20041006
  3. TAVANIC [Suspect]
     Indication: STAPHYLOCOCCAL INFECTION
     Route: 042
     Dates: start: 20040901, end: 20041006
  4. LASILIX [Suspect]
     Route: 048
  5. DI-ANTALVIC [Suspect]
     Dosage: DOSE: 2-2-2; DOSE UNIT: UNITS
     Route: 048
     Dates: start: 20040914, end: 20040921
  6. ORBENINE [Suspect]
     Indication: ARTHRITIS BACTERIAL
     Route: 042
     Dates: start: 20040901, end: 20041007
  7. ORBENINE [Suspect]
     Indication: STAPHYLOCOCCAL INFECTION
     Route: 042
     Dates: start: 20040901, end: 20041007
  8. ALDACTONE [Suspect]
     Route: 048
  9. THIAMINE HCL [Concomitant]
  10. VITAMIN B6 [Concomitant]
  11. DIFFU K [Concomitant]
  12. MOTILIUM [Concomitant]
  13. OXAZEPAM [Concomitant]
     Indication: AGITATION
     Route: 048
  14. DUPHALAC [Concomitant]

REACTIONS (9)
  - ASPARTATE AMINOTRANSFERASE INCREASED [None]
  - CHOLESTASIS [None]
  - CYTOLYTIC HEPATITIS [None]
  - ENCEPHALOPATHY [None]
  - HEPATOCELLULAR DAMAGE [None]
  - JAUNDICE [None]
  - OESOPHAGEAL CANDIDIASIS [None]
  - PORTAL HYPERTENSION [None]
  - VOMITING [None]
